FAERS Safety Report 23341257 (Version 2)
Quarter: 2024Q1

REPORT INFORMATION
  Report Type: Spontaneous
  Country: US (occurrence: US)
  Receive Date: 20231227
  Receipt Date: 20240102
  Transmission Date: 20240410
  Serious: Yes (Other)
  Sender: FDA-Public Use
  Company Number: US-BRISTOL-MYERS SQUIBB COMPANY-2023-184277

PATIENT
  Age: 55 Year
  Sex: Female

DRUGS (3)
  1. LENALIDOMIDE [Suspect]
     Active Substance: LENALIDOMIDE
     Indication: Plasma cell myeloma
     Dosage: TAKE 1 CAPSULE BY MOUTH EVERY OTHER DAY FOR 14 DAYS FOLLOWED BY A 7-DAY BREAK.
     Route: 048
     Dates: start: 20231212
  2. BENADRYL [Suspect]
     Active Substance: DIPHENHYDRAMINE HYDROCHLORIDE
     Indication: Nasopharyngitis
     Dosage: NIGHT
  3. BENADRYL [Suspect]
     Active Substance: DIPHENHYDRAMINE HYDROCHLORIDE
     Indication: Pruritus

REACTIONS (20)
  - Nasopharyngitis [Unknown]
  - Pruritus [Unknown]
  - Paraesthesia [Unknown]
  - Hypoaesthesia [Unknown]
  - Decreased appetite [Unknown]
  - Muscle tightness [Unknown]
  - Dyspnoea [Unknown]
  - Neuropathy peripheral [Unknown]
  - Renal impairment [Unknown]
  - Asthma [Unknown]
  - Back injury [Unknown]
  - Rib fracture [Unknown]
  - Platelet count increased [Unknown]
  - White blood cell count increased [Unknown]
  - Somnolence [Unknown]
  - Fall [Unknown]
  - Off label use [Unknown]
  - Fatigue [Unknown]
  - Peripheral swelling [Unknown]
  - Rash pruritic [Not Recovered/Not Resolved]
